FAERS Safety Report 17674585 (Version 1)
Quarter: 2020Q2

REPORT INFORMATION
  Report Type: Spontaneous
  Country: CA (occurrence: CA)
  Receive Date: 20200416
  Receipt Date: 20200416
  Transmission Date: 20200714
  Serious: Yes (Hospitalization)
  Sender: FDA-Public Use
  Company Number: CA-009507513-2004CAN004240

PATIENT
  Age: 60 Year
  Sex: Female

DRUGS (1)
  1. PEMBROLIZUMAB. [Suspect]
     Active Substance: PEMBROLIZUMAB
     Dosage: 150 MILLIGRAM, 1 EVERY 3 WEEKS; DOSAGE FORM POWDER FOR SOLUTION INTRAVENOUS
     Route: 042

REACTIONS (1)
  - Blood count abnormal [Unknown]
